FAERS Safety Report 21936218 (Version 1)
Quarter: 2023Q1

REPORT INFORMATION
  Report Type: Report from Study
  Country: US (occurrence: US)
  Receive Date: 20230201
  Receipt Date: 20230201
  Transmission Date: 20230417
  Serious: Yes (Hospitalization, Other)
  Sender: FDA-Public Use
  Company Number: US-ABBVIE-4281065

PATIENT
  Sex: Male

DRUGS (4)
  1. VENCLEXTA [Suspect]
     Active Substance: VENETOCLAX
     Indication: Product used for unknown indication
     Route: 048
     Dates: start: 20230117
  2. LEVAQUIN [Concomitant]
     Active Substance: LEVOFLOXACIN
     Indication: Product used for unknown indication
  3. CRESTOR [Concomitant]
     Active Substance: ROSUVASTATIN CALCIUM
     Indication: Product used for unknown indication
  4. XOSPATA [Concomitant]
     Active Substance: GILTERITINIB
     Indication: Acute leukaemia
     Dates: start: 20220930

REACTIONS (5)
  - Leukaemia [Unknown]
  - Sepsis [Unknown]
  - Neutropenia [Unknown]
  - Nausea [Unknown]
  - Psychiatric symptom [Recovering/Resolving]
